FAERS Safety Report 19078137 (Version 3)
Quarter: 2021Q2

REPORT INFORMATION
  Report Type: Spontaneous
  Country: US (occurrence: US)
  Receive Date: 20210331
  Receipt Date: 20210520
  Transmission Date: 20210717
  Serious: No
  Sender: FDA-Public Use
  Company Number: US-GLAXOSMITHKLINE-US2021AMR070909

PATIENT
  Sex: Female

DRUGS (4)
  1. ZEJULA [Suspect]
     Active Substance: NIRAPARIB
     Dosage: 2 DF, QD (CAPSULES)
     Dates: start: 20210319
  2. ZEJULA [Suspect]
     Active Substance: NIRAPARIB
     Dosage: 100 MG, BID
     Route: 048
  3. ZEJULA [Suspect]
     Active Substance: NIRAPARIB
     Dosage: 200 MG, QD
     Route: 048
  4. ZEJULA [Suspect]
     Active Substance: NIRAPARIB
     Indication: OVARIAN CANCER
     Dosage: 2 DF, BID (CAPSULES)

REACTIONS (7)
  - Urinary tract infection [Unknown]
  - Overdose [Unknown]
  - Vision blurred [Unknown]
  - Product use issue [Unknown]
  - Platelet count decreased [Not Recovered/Not Resolved]
  - Weight decreased [Unknown]
  - Feeling abnormal [Unknown]
